FAERS Safety Report 21853344 (Version 1)
Quarter: 2023Q1

REPORT INFORMATION
  Report Type: Spontaneous
  Country: US (occurrence: US)
  Receive Date: 20230112
  Receipt Date: 20230112
  Transmission Date: 20230418
  Serious: Yes (Hospitalization)
  Sender: FDA-Public Use
  Company Number: US-MYLANLABS-2022M1141254

PATIENT
  Age: 63 Year
  Sex: Male

DRUGS (6)
  1. GLYBURIDE [Suspect]
     Active Substance: GLYBURIDE
     Indication: Product used for unknown indication
     Dosage: UNK; TOOK 5-10 TIMES THE STANDARD THERAPEUTIC DOSES
     Route: 065
  2. OCTREOTIDE [Suspect]
     Active Substance: OCTREOTIDE
     Indication: Hypoglycaemia
     Dosage: UNK; INTRAVENOUS (NOT SPECIFIED)
     Route: 042
  3. DEXTROSE [Suspect]
     Active Substance: DEXTROSE
     Indication: Hypoglycaemia
     Dosage: 50 MILLILITER
     Route: 065
  4. DEXTROSE [Suspect]
     Active Substance: DEXTROSE
     Indication: Hypoglycaemia
     Dosage: 50 MILLILITER
     Route: 065
  5. DEXTROSE [Suspect]
     Active Substance: DEXTROSE
     Indication: Hypoglycaemia
     Dosage: UNK; INTRAVENOUS (NOT SPECIFIED)
     Route: 042
  6. NALOXONE [Concomitant]
     Active Substance: NALOXONE
     Indication: Product used for unknown indication
     Dosage: 2.5 MILLIGRAM
     Route: 065

REACTIONS (5)
  - Hypoglycaemia [Unknown]
  - Intentional overdose [Unknown]
  - Intentional product misuse [Unknown]
  - Hyperglycaemia [Recovered/Resolved]
  - Off label use [Unknown]
